FAERS Safety Report 20777462 (Version 12)
Quarter: 2025Q1

REPORT INFORMATION
  Report Type: Report from Study
  Country: DE (occurrence: DE)
  Receive Date: 20220503
  Receipt Date: 20250214
  Transmission Date: 20250409
  Serious: Yes (Other)
  Sender: ROCHE
  Company Number: DE-ROCHE-3087247

PATIENT
  Age: 29 Year
  Sex: Female

DRUGS (3)
  1. OCRELIZUMAB [Suspect]
     Active Substance: OCRELIZUMAB
     Indication: Relapsing-remitting multiple sclerosis
     Route: 042
     Dates: start: 20220329
  2. OCRELIZUMAB [Suspect]
     Active Substance: OCRELIZUMAB
     Dosage: SUBSEQUENT DOSE 600 MG 1 IN 210 DAYS
     Route: 042
     Dates: end: 20230817
  3. LEVOTHYROXINE [Concomitant]
     Active Substance: LEVOTHYROXINE

REACTIONS (17)
  - COVID-19 [Recovered/Resolved]
  - Fatigue [Recovered/Resolved]
  - Euphoric mood [Recovered/Resolved]
  - Off label use [Unknown]
  - Tremor [Not Recovered/Not Resolved]
  - Peroneal nerve palsy [Not Recovered/Not Resolved]
  - Hypersensitivity [Recovered/Resolved]
  - Skin burning sensation [Recovered/Resolved]
  - Muscle spasms [Recovered/Resolved]
  - Blister [Recovered/Resolved]
  - Dyspnoea exertional [Recovered/Resolved]
  - Vertigo [Not Recovered/Not Resolved]
  - Hot flush [Not Recovered/Not Resolved]
  - Nausea [Not Recovered/Not Resolved]
  - Cough [Recovered/Resolved]
  - Multiple sclerosis relapse [Recovering/Resolving]
  - Muscle spasticity [Recovering/Resolving]

NARRATIVE: CASE EVENT DATE: 20220329
